FAERS Safety Report 7204406-7 (Version None)
Quarter: 2010Q4

REPORT INFORMATION
  Report Type: 
  Country: None (occurrence: None)
  Receive Date: 20101230
  Receipt Date: 20101221
  Transmission Date: 20110411
  Serious: Yes (Life-Threatening, Hospitalization, Congenital Anomaly)
  Sender: FDA-Public Use
  Company Number: FR-ROCHE-714337

PATIENT
  Sex: Female
  Weight: 2.4 kg

DRUGS (3)
  1. TAMIFLU [Suspect]
     Indication: COUGH
     Route: 064
     Dates: start: 20091201
  2. CARBOCISTEINE [Concomitant]
  3. ACETAMINOPHEN [Concomitant]

REACTIONS (5)
  - DYSPNOEA [None]
  - HYPOXIA [None]
  - PULMONARY ARTERIAL HYPERTENSION [None]
  - RESPIRATORY DISTRESS [None]
  - RESPIRATORY TRACT MALFORMATION [None]
